FAERS Safety Report 18338979 (Version 1)
Quarter: 2020Q4

REPORT INFORMATION
  Report Type: Report from Study
  Country: KR (occurrence: KR)
  Receive Date: 20201002
  Receipt Date: 20201002
  Transmission Date: 20210113
  Serious: Yes (Death)
  Sender: FDA-Public Use
  Company Number: KR-PFIZER INC-2020380388

PATIENT

DRUGS (3)
  1. METHOTREXATE SODIUM. [Suspect]
     Active Substance: METHOTREXATE SODIUM
     Indication: LYMPHOMA
     Dosage: 8 MG/M2, CYCLIC (EVERY 10 DAYS)
     Route: 042
  2. METHOTREXATE SODIUM. [Suspect]
     Active Substance: METHOTREXATE SODIUM
     Dosage: 3.5 MG/M2, CYCLIC (SIX CYCLES; FIRST THREE CYCLES EVERY 28 DAYS AND THEN THREE CYCLES EVERY 3 MONTHS
     Route: 042
  3. LEUCOVORIN CALCIUM. [Concomitant]
     Active Substance: LEUCOVORIN CALCIUM
     Indication: CENTRAL NERVOUS SYSTEM LYMPHOMA
     Dosage: 25 MG

REACTIONS (1)
  - Pneumonia [Fatal]
